FAERS Safety Report 6247163-3 (Version None)
Quarter: 2009Q2

REPORT INFORMATION
  Report Type: 
  Country: None (occurrence: None)
  Receive Date: 20090626
  Receipt Date: 20090618
  Transmission Date: 20091009
  Serious: Yes (Death)
  Sender: FDA-Public Use
  Company Number: AU-AVENTIS-200913602EU

PATIENT
  Age: 85 Year
  Sex: Male

DRUGS (9)
  1. RILUTEK [Suspect]
     Route: 048
     Dates: start: 20081222
  2. DILATREND [Concomitant]
  3. AMLODIPINE [Concomitant]
  4. ASPIRIN [Concomitant]
  5. ZIMSTAT [Concomitant]
  6. LANOXIN [Concomitant]
  7. LASIX [Concomitant]
  8. COVERSYL                           /00790701/ [Concomitant]
  9. PANAMAX [Concomitant]

REACTIONS (1)
  - DEATH [None]
